FAERS Safety Report 4958147-7 (Version None)
Quarter: 2006Q1

REPORT INFORMATION
  Report Type: 
  Country: None (occurrence: None)
  Receive Date: 20060330
  Receipt Date: 20051003
  Transmission Date: 20060701
  Serious: Yes (Hospitalization)
  Sender: FDA-Public Use
  Company Number: US-MERCK-0510USA02506

PATIENT
  Sex: Female
  Weight: 83 kg

DRUGS (2)
  1. VIOXX [Suspect]
     Indication: BACK PAIN
     Route: 048
     Dates: start: 19991028, end: 20040901
  2. [THERAPY UNSPECIFIED] [Concomitant]
     Route: 065

REACTIONS (2)
  - ARTHROPATHY [None]
  - MYOCARDIAL INFARCTION [None]
